FAERS Safety Report 6874639-8 (Version None)
Quarter: 2010Q3

REPORT INFORMATION
  Report Type: 
  Country: None (occurrence: None)
  Receive Date: 20100722
  Receipt Date: 20100715
  Transmission Date: 20110219
  Serious: Yes (Hospitalization)
  Sender: FDA-Public Use
  Company Number: DSA_43528_2010

PATIENT
  Sex: Female

DRUGS (1)
  1. XENAZINE [Suspect]
     Indication: HUNTINGTON'S DISEASE
     Dosage: 25 MG BID ORAL
     Route: 048
     Dates: start: 20100303

REACTIONS (5)
  - HEAD INJURY [None]
  - HYPOPHAGIA [None]
  - NAUSEA [None]
  - SYNCOPE [None]
  - VOMITING [None]
